FAERS Safety Report 8513719-8 (Version None)
Quarter: 2012Q3

REPORT INFORMATION
  Report Type: 
  Country: None (occurrence: None)
  Receive Date: 20120717
  Receipt Date: 20120711
  Transmission Date: 20120928
  Serious: No
  Sender: FDA-Public Use
  Company Number: US-PFIZER INC-2012168326

PATIENT
  Sex: Female
  Weight: 81.633 kg

DRUGS (3)
  1. LYRICA [Suspect]
     Indication: FIBROMYALGIA
     Dosage: UNK
     Route: 048
  2. HYDROCODONE [Suspect]
     Indication: PAIN
     Dosage: UNK
  3. CYMBALTA [Concomitant]
     Dosage: 60 MG, DAILY

REACTIONS (6)
  - BLOOD CHOLESTEROL INCREASED [None]
  - PAIN [None]
  - DISTURBANCE IN ATTENTION [None]
  - BLOOD TRIGLYCERIDES INCREASED [None]
  - INSOMNIA [None]
  - DRUG INEFFECTIVE [None]
